FAERS Safety Report 14904029 (Version 2)
Quarter: 2018Q2

REPORT INFORMATION
  Report Type: Spontaneous
  Country: US (occurrence: US)
  Receive Date: 20180516
  Receipt Date: 20180522
  Transmission Date: 20180711
  Serious: Yes (Other)
  Sender: FDA-Public Use
  Company Number: US-ACTELION-A-NJ2018-172079

PATIENT
  Age: 54 Year
  Sex: Female

DRUGS (1)
  1. OPSUMIT [Suspect]
     Active Substance: MACITENTAN
     Indication: PULMONARY ARTERIAL HYPERTENSION
     Dosage: UNK
     Route: 048
     Dates: end: 201805

REACTIONS (8)
  - Crying [Unknown]
  - Fatigue [Unknown]
  - Cough [Unknown]
  - Mobility decreased [Unknown]
  - Cardiac operation [Unknown]
  - Therapy cessation [Unknown]
  - Feeling abnormal [Unknown]
  - Malaise [Unknown]
